FAERS Safety Report 6607851-3 (Version None)
Quarter: 2010Q1

REPORT INFORMATION
  Report Type: 
  Country: None (occurrence: None)
  Receive Date: 20100225
  Receipt Date: 20100225
  Transmission Date: 20100710
  Serious: Yes (Death)
  Sender: FDA-Public Use
  Company Number: None

PATIENT
  Age: 62 Year
  Sex: Male
  Weight: 65.3 kg

DRUGS (2)
  1. MONTELUKAST SODIUM [Suspect]
     Indication: MULTIPLE ALLERGIES
     Dosage: 10 MG EVERY DAY PO
     Route: 048
     Dates: start: 20070101, end: 20090428
  2. MONTELUKAST SODIUM [Suspect]
     Indication: NASOPHARYNGITIS
     Dosage: 10 MG EVERY DAY PO
     Route: 048
     Dates: start: 20070101, end: 20090428

REACTIONS (3)
  - COMPLETED SUICIDE [None]
  - DEPRESSION [None]
  - GUN SHOT WOUND [None]
